FAERS Safety Report 7115034-6 (Version None)
Quarter: 2010Q4

REPORT INFORMATION
  Report Type: 
  Country: None (occurrence: None)
  Receive Date: 20101122
  Receipt Date: 20101106
  Transmission Date: 20110411
  Serious: Yes (Other)
  Sender: FDA-Public Use
  Company Number: US-RB-015128-10

PATIENT
  Age: 28 Year

DRUGS (1)
  1. MUCINEX [Suspect]
     Dosage: PATIENT TOOK AN ENTIRE BOX OF AN UNSPECIFIED MUCINEX PRODUCT.
     Route: 048

REACTIONS (3)
  - INTENTIONAL SELF-INJURY [None]
  - NO ADVERSE EVENT [None]
  - OVERDOSE [None]
